FAERS Safety Report 13692546 (Version 1)
Quarter: 2017Q2

REPORT INFORMATION
  Report Type: Spontaneous
  Country: ES (occurrence: ES)
  Receive Date: 20170627
  Receipt Date: 20170627
  Transmission Date: 20170830
  Serious: Yes (Hospitalization, Other)
  Sender: FDA-Public Use
  Company Number: ES-AUROBINDO-AUR-APL-2017-35750

PATIENT
  Age: 51 Year
  Sex: Female

DRUGS (4)
  1. ATAZANAVIR [Concomitant]
     Active Substance: ATAZANAVIR
     Indication: ANTIRETROVIRAL THERAPY
     Route: 065
  2. RIBAVIRIN. [Suspect]
     Active Substance: RIBAVIRIN
     Indication: HEPATITIS C
     Dosage: WEIGHT-ADJUSTED
     Route: 065
  3. DASABUVIR [Suspect]
     Active Substance: DASABUVIR
     Indication: HEPATITIS C
     Route: 065
  4. LAMIVUDINE. [Concomitant]
     Active Substance: LAMIVUDINE
     Indication: ANTIRETROVIRAL THERAPY

REACTIONS (1)
  - Hepatitis E [Recovered/Resolved]
